FAERS Safety Report 8264315-1 (Version None)
Quarter: 2012Q2

REPORT INFORMATION
  Report Type: 
  Country: None (occurrence: None)
  Receive Date: 20120406
  Receipt Date: 20120328
  Transmission Date: 20120825
  Serious: Yes (Life-Threatening, Hospitalization, Other)
  Sender: FDA-Public Use
  Company Number: JP-JNJFOC-20111200604

PATIENT
  Sex: Female
  Weight: 35 kg

DRUGS (28)
  1. FORTEO [Concomitant]
     Route: 058
  2. KENALOG [Concomitant]
     Route: 065
  3. RHEUMATREX [Suspect]
     Route: 048
     Dates: start: 20040409
  4. PREDNISOLONE [Concomitant]
     Route: 048
     Dates: start: 20060310
  5. LIPITOR [Concomitant]
     Indication: HYPERLIPIDAEMIA
     Route: 048
  6. REMICADE [Suspect]
     Route: 042
     Dates: start: 20050701
  7. METHOTREXATE [Suspect]
     Indication: RHEUMATOID ARTHRITIS
     Dosage: 4MG X 1  2MG X 2
     Route: 048
     Dates: start: 20070213, end: 20111121
  8. NSAID [Suspect]
     Indication: PRODUCT USED FOR UNKNOWN INDICATION
     Route: 065
  9. ETODOLAC [Concomitant]
     Indication: RHEUMATOID ARTHRITIS
     Route: 048
  10. ETODOLAC [Concomitant]
     Route: 048
  11. FLAVITAN [Concomitant]
     Route: 048
  12. AMLODIPINE [Concomitant]
     Indication: HYPERTENSION
     Route: 048
  13. FERROUS CITRATE [Concomitant]
     Route: 065
  14. REMICADE [Suspect]
     Indication: RHEUMATOID ARTHRITIS
     Route: 042
     Dates: start: 20111013
  15. REMICADE [Suspect]
     Route: 042
     Dates: start: 20041005
  16. PREDNISOLONE [Concomitant]
     Route: 048
     Dates: start: 20040809
  17. FOLIC ACID [Concomitant]
     Indication: ANAEMIA
     Route: 048
  18. STEROIDS NOS [Suspect]
     Indication: PRODUCT USED FOR UNKNOWN INDICATION
     Route: 065
  19. PROTECADIN [Concomitant]
     Route: 048
  20. RHEUMATREX [Suspect]
     Indication: PRODUCT USED FOR UNKNOWN INDICATION
     Route: 048
     Dates: start: 20030922
  21. PREDNISOLONE [Concomitant]
     Route: 048
     Dates: start: 20050916
  22. REMICADE [Suspect]
     Route: 042
     Dates: start: 20050826
  23. PREDNISOLONE [Concomitant]
     Route: 048
     Dates: start: 20030501
  24. PREDNISOLONE [Concomitant]
     Route: 048
     Dates: start: 20060125
  25. SELBEX [Concomitant]
     Indication: RHEUMATOID ARTHRITIS
     Route: 048
  26. SELBEX [Concomitant]
     Route: 048
  27. RIMATIL [Concomitant]
     Route: 048
     Dates: start: 20030501
  28. FERROUS CITRATE [Concomitant]
     Indication: ANAEMIA
     Route: 065

REACTIONS (11)
  - LIVER DISORDER [None]
  - JOINT ARTHROPLASTY [None]
  - NECROTISING COLITIS [None]
  - SEPSIS [None]
  - FOREARM FRACTURE [None]
  - INTESTINAL OBSTRUCTION [None]
  - DUODENAL ULCER [None]
  - DISSEMINATED INTRAVASCULAR COAGULATION [None]
  - BONE MARROW FAILURE [None]
  - STOMATITIS [None]
  - NECROTISING OESOPHAGITIS [None]
